FAERS Safety Report 10170995 (Version 1)
Quarter: 2014Q2

REPORT INFORMATION
  Report Type: Spontaneous
  Country: US (occurrence: None)
  Receive Date: 20140513
  Receipt Date: 20140513
  Transmission Date: 20141212
  Serious: Yes (Hospitalization)
  Sender: FDA-Public Use
  Company Number: None

PATIENT
  Age: 31 Year
  Sex: Male

DRUGS (11)
  1. FORTEO 600 MCG LILLY [Suspect]
     Indication: PRODUCT USED FOR UNKNOWN INDICATION
     Route: 058
     Dates: start: 20140305
  2. FORTEO 600 MCG LILLY [Suspect]
     Indication: PRODUCT USED FOR UNKNOWN INDICATION
     Route: 058
     Dates: start: 20140305
  3. RIBOFLAVIN [Concomitant]
  4. VANCOMYCIN [Concomitant]
  5. VITAMIN D [Concomitant]
  6. CLARITIN [Concomitant]
  7. MAGNESIUM OXIDE [Concomitant]
  8. HYDROCORTISONE [Concomitant]
  9. CLONAZEPAM [Concomitant]
  10. DEXAMETHASONE [Concomitant]
  11. SYNTHROID [Concomitant]

REACTIONS (1)
  - Drug dose omission [None]
